FAERS Safety Report 15150398 (Version 7)
Quarter: 2018Q4

REPORT INFORMATION
  Report Type: Report from Study
  Country: US (occurrence: US)
  Receive Date: 20180716
  Receipt Date: 20181205
  Transmission Date: 20190204
  Serious: Yes (Other)
  Sender: FDA-Public Use
  Company Number: US-PFIZER INC-2018238121

PATIENT
  Age: 85 Year
  Sex: Female

DRUGS (3)
  1. IBRANCE [Suspect]
     Active Substance: PALBOCICLIB
     Dosage: 75 MG, CYCLIC, (75MG DAILY FOR 14 DAYS ON, 7 DAYS OFF)
     Route: 048
     Dates: start: 20180920
  2. IBRANCE [Suspect]
     Active Substance: PALBOCICLIB
     Dosage: 75 MG, CYCLIC (DAILY - 21 ON, 7 OFF)
     Route: 048
     Dates: start: 20180721
  3. IBRANCE [Suspect]
     Active Substance: PALBOCICLIB
     Indication: BREAST CANCER
     Dosage: 100 MG, CYCLIC (DAILY - 21 ON, 7 OFF)
     Route: 048
     Dates: start: 20180602, end: 20180622

REACTIONS (9)
  - Bone marrow failure [Unknown]
  - Decreased appetite [Unknown]
  - Nausea [Unknown]
  - Asthenia [Unknown]
  - Hypokalaemia [Unknown]
  - Hypotension [Unknown]
  - Leukopenia [Recovering/Resolving]
  - White blood cell count decreased [Unknown]
  - Fatigue [Unknown]

NARRATIVE: CASE EVENT DATE: 2018
